FAERS Safety Report 4888633-X (Version None)
Quarter: 2006Q1

REPORT INFORMATION
  Report Type: 
  Country: None (occurrence: None)
  Receive Date: 20060123
  Receipt Date: 20050621
  Transmission Date: 20060701
  Serious: Yes (Life-Threatening, Other)
  Sender: FDA-Public Use
  Company Number: JP-ABBOTT-05P-087-0303924-00

PATIENT
  Sex: Male
  Weight: 40 kg

DRUGS (6)
  1. LOWMORIN [Suspect]
     Indication: HAEMODIALYSIS
     Route: 042
     Dates: start: 20050609, end: 20050611
  2. NAFAMOSTAT MESILATE [Concomitant]
     Indication: HAEMODIALYSIS
     Route: 042
  3. HEPARIN [Concomitant]
     Indication: DRUG USE FOR UNKNOWN INDICATION
  4. PIPERACILLIN SODIUM [Concomitant]
     Indication: URINARY TRACT INFECTION
     Route: 042
  5. EPOETIN BETA [Concomitant]
     Indication: NEPHROGENIC ANAEMIA
     Dates: start: 20050609
  6. AMINO ACIDS [Concomitant]
     Indication: HYPOALBUMINAEMIA
     Dates: start: 20050611

REACTIONS (9)
  - C-REACTIVE PROTEIN INCREASED [None]
  - CALCULUS BLADDER [None]
  - EATING DISORDER [None]
  - HAEMOGLOBIN DECREASED [None]
  - INFECTION [None]
  - MALNUTRITION [None]
  - PLATELET COUNT DECREASED [None]
  - PYREXIA [None]
  - RENAL IMPAIRMENT [None]
